FAERS Safety Report 13162030 (Version 2)
Quarter: 2017Q2

REPORT INFORMATION
  Report Type: Spontaneous
  Country: US (occurrence: US)
  Receive Date: 20170130
  Receipt Date: 20170427
  Transmission Date: 20170830
  Serious: No
  Sender: FDA-Public Use
  Company Number: US-PFIZER INC-2017036091

PATIENT
  Age: 64 Year
  Sex: Male
  Weight: 77 kg

DRUGS (7)
  1. GLIPIZIDE. [Concomitant]
     Active Substance: GLIPIZIDE
     Indication: DIABETES MELLITUS
     Dosage: 5 MG, 2X/DAY, ^ONE TABLET IN THE MORNING AND ONE AT NIGHT^
  2. ASPRIN [Concomitant]
     Active Substance: ASPIRIN
     Dosage: 81 MG, 1X/DAY
  3. LOSARTAN POTASSIUM. [Concomitant]
     Active Substance: LOSARTAN POTASSIUM
     Indication: HYPERTENSION
     Dosage: 50 MG, ALTERNATE DAY
  4. TRIAZOLAM. [Suspect]
     Active Substance: TRIAZOLAM
     Indication: INSOMNIA
     Dosage: 0.5 MG, DAILY, ^TAKES 2 AND PLACES BETWEEN TONGUE AND ROOF OF MOUTH EVERY NIGHT^
  5. TRIAZOLAM. [Suspect]
     Active Substance: TRIAZOLAM
     Dosage: 0.75 MG, DAILY, ^TAKE 3 PILLS EVERY NIGHT AND PLACES BETWEEN TONGUE AND ROOF OF MOUTH^
  6. MORPHINE [Concomitant]
     Active Substance: MORPHINE
     Dosage: 30 MG, 3X/DAY
  7. MINOCYCLINE [Concomitant]
     Active Substance: MINOCYCLINE\MINOCYCLINE HYDROCHLORIDE
     Indication: ACNE
     Dosage: 100 MG, UNK

REACTIONS (4)
  - Drug ineffective [Unknown]
  - Product quality issue [Not Recovered/Not Resolved]
  - Poor quality drug administered [Not Recovered/Not Resolved]
  - Intentional overdose [Not Recovered/Not Resolved]

NARRATIVE: CASE EVENT DATE: 2016
